FAERS Safety Report 19015490 (Version 6)
Quarter: 2021Q2

REPORT INFORMATION
  Report Type: Report from Study
  Country: CO (occurrence: CO)
  Receive Date: 20210316
  Receipt Date: 20210424
  Transmission Date: 20210717
  Serious: No
  Sender: FDA-Public Use
  Company Number: CO-TAKEDA-CO202028046

PATIENT
  Sex: Female
  Weight: 53 kg

DRUGS (2)
  1. ICATIBANT [Suspect]
     Active Substance: ICATIBANT ACETATE
     Indication: HEREDITARY ANGIOEDEMA
     Dosage: 30 MILLIGRAM, MAXIMUM 3 DOSE IN 24 HOURS
     Route: 058
     Dates: start: 20170705
  2. ICATIBANT [Suspect]
     Active Substance: ICATIBANT ACETATE
     Indication: HEREDITARY ANGIOEDEMA
     Dosage: 30 MILLIGRAM, MAXIMUM 3 DOSE IN 24 HOURS
     Route: 058
     Dates: start: 20170705

REACTIONS (1)
  - No adverse event [Unknown]
